FAERS Safety Report 8416244-8 (Version None)
Quarter: 2012Q2

REPORT INFORMATION
  Report Type: 
  Country: None (occurrence: None)
  Receive Date: 20120530
  Receipt Date: 20120514
  Transmission Date: 20120825
  Serious: Yes (Life-Threatening)
  Sender: FDA-Public Use
  Company Number: 2012SP025295

PATIENT
  Age: 39 Year
  Sex: Female
  Weight: 84 kg

DRUGS (5)
  1. LITHIUM [Concomitant]
  2. NEULACTIL [Concomitant]
  3. VALIUM [Concomitant]
  4. SAPHRIS [Suspect]
     Indication: PSYCHOTIC DISORDER
     Dosage: 5 MG;ONCE;SL
     Route: 060
     Dates: start: 20120510, end: 20120510
  5. CITALOPRAM HYDROBROMIDE [Concomitant]

REACTIONS (2)
  - ANAPHYLACTIC REACTION [None]
  - OFF LABEL USE [None]
